FAERS Safety Report 18610731 (Version 1)
Quarter: 2020Q4

REPORT INFORMATION
  Report Type: Spontaneous
  Country: US (occurrence: US)
  Receive Date: 20201211
  Receipt Date: 20201211
  Transmission Date: 20210114
  Serious: Yes (Death)
  Sender: FDA-Public Use
  Company Number: None

PATIENT
  Age: 68 Year
  Sex: Female

DRUGS (1)
  1. ETOPOSIDE CAP 50MG [Suspect]
     Active Substance: ETOPOSIDE
     Dosage: OTHER FREQUENCY:OTHER;?
     Route: 048
     Dates: start: 202010, end: 202011

REACTIONS (1)
  - Death [None]

NARRATIVE: CASE EVENT DATE: 20201129
